FAERS Safety Report 6293612-4 (Version None)
Quarter: 2009Q3

REPORT INFORMATION
  Report Type: 
  Country: None (occurrence: None)
  Receive Date: 20090729
  Receipt Date: 20090727
  Transmission Date: 20100115
  Serious: Yes (Hospitalization, Other)
  Sender: FDA-Public Use
  Company Number: SP02429

PATIENT
  Age: 77 Year
  Sex: Female

DRUGS (6)
  1. VISICOL [Suspect]
     Indication: COLONOSCOPY
     Dosage: (50 GM), ORAL
     Route: 048
     Dates: start: 20090522, end: 20090522
  2. VISICOL [Suspect]
     Indication: PREOPERATIVE CARE
     Dosage: (50 GM), ORAL
     Route: 048
     Dates: start: 20090522, end: 20090522
  3. SODIUM PICOSULFATE [Concomitant]
  4. AMLODIPINE [Concomitant]
  5. LOSARTAN POTASSIUM [Concomitant]
  6. MEFRUSIDE [Concomitant]

REACTIONS (3)
  - MALAISE [None]
  - NEPHROGENIC ANAEMIA [None]
  - RENAL FAILURE ACUTE [None]
